FAERS Safety Report 17126065 (Version 1)
Quarter: 2019Q4

REPORT INFORMATION
  Report Type: Report from Study
  Country: CN (occurrence: CN)
  Receive Date: 20191209
  Receipt Date: 20191209
  Transmission Date: 20200122
  Serious: Yes (Hospitalization)
  Sender: FDA-Public Use
  Company Number: CN-UCBSA-2019018602

PATIENT
  Age: 7 Year
  Sex: Female
  Weight: 22 kg

DRUGS (7)
  1. LACOSAMIDE. [Suspect]
     Active Substance: LACOSAMIDE
     Dosage: 100 MILLIGRAM, 2X/DAY (BID)
     Route: 048
     Dates: start: 20180508, end: 201805
  2. LACOSAMIDE. [Suspect]
     Active Substance: LACOSAMIDE
     Dosage: 11 MILLILITER, 2X/DAY (BID); 10MG/KG/DAY
     Route: 048
     Dates: start: 20180522, end: 20180921
  3. LEVETIRACETAM. [Concomitant]
     Active Substance: LEVETIRACETAM
     Indication: EPILEPSY
     Dosage: 500MG IN AM AND 375MG IN PM, 2X/DAY (BID)
     Route: 048
     Dates: start: 2017
  4. LACOSAMIDE. [Suspect]
     Active Substance: LACOSAMIDE
     Indication: EPILEPSY
     Dosage: 50 MILLIGRAM, 2X/DAY (BID)
     Route: 048
     Dates: start: 20180427, end: 201805
  5. LACOSAMIDE. [Suspect]
     Active Substance: LACOSAMIDE
     Dosage: 2 MILLILITER, 2X/DAY (BID); 2MG/KG/DAY
     Route: 048
     Dates: start: 20180929, end: 20181006
  6. LACOSAMIDE. [Suspect]
     Active Substance: LACOSAMIDE
     Dosage: 6.5 MILLILITER, 2X/DAY (BID); 6MG/KG/DAY
     Route: 048
     Dates: start: 20180922, end: 20180928
  7. OXCARBAZEPINE. [Concomitant]
     Active Substance: OXCARBAZEPINE
     Indication: EPILEPSY
     Dosage: 0.3 GRAM, 2X/DAY (BID)
     Route: 048
     Dates: start: 2017

REACTIONS (1)
  - Focal dyscognitive seizures [Recovered/Resolved]

NARRATIVE: CASE EVENT DATE: 20181011
